FAERS Safety Report 7637808-5 (Version None)
Quarter: 2011Q3

REPORT INFORMATION
  Report Type: 
  Country: None (occurrence: None)
  Receive Date: 20110720
  Receipt Date: 20110628
  Transmission Date: 20111222
  Serious: Yes (Other)
  Sender: FDA-Public Use
  Company Number: 2011PROUSA00408

PATIENT
  Age: 62 Year
  Sex: Male
  Weight: 89.6 kg

DRUGS (2)
  1. PROVENGE [Suspect]
     Indication: PROSTATE CANCER METASTATIC
     Dosage: 250 ML, SINGLE, INTRAVENOUS
     Route: 042
     Dates: start: 20110523, end: 20110523
  2. PROVENGE [Suspect]
     Dosage: 250 ML, SINGLE, INTRAVENOUS
     Route: 042
     Dates: start: 20110609, end: 20110609

REACTIONS (8)
  - CHEST PAIN [None]
  - CEREBROVASCULAR ACCIDENT [None]
  - TONGUE PARALYSIS [None]
  - ACTIVITIES OF DAILY LIVING IMPAIRED [None]
  - MUSCULAR WEAKNESS [None]
  - HYPERSOMNIA [None]
  - MOTOR DYSFUNCTION [None]
  - DYSGRAPHIA [None]
